FAERS Safety Report 8335804-6 (Version None)
Quarter: 2012Q2

REPORT INFORMATION
  Report Type: 
  Country: None (occurrence: None)
  Receive Date: 20120504
  Receipt Date: 20080903
  Transmission Date: 20120825
  Serious: Yes (Other)
  Sender: FDA-Public Use
  Company Number: US-BAYER-200823607NA

PATIENT
  Sex: Female

DRUGS (32)
  1. MAGNEVIST [Suspect]
     Indication: NUCLEAR MAGNETIC RESONANCE IMAGING BRAIN
     Dosage: 0.1MMOL/KG DOSE
     Route: 042
     Dates: start: 20050725, end: 20050725
  2. OMNISCAN [Suspect]
     Indication: ANGIOGRAM
     Dosage: 20ML
     Dates: start: 20030211, end: 20030211
  3. PROGRAF [Concomitant]
     Indication: RENAL TRANSPLANT
     Dosage: 2MG TWICE DAILY
  4. PROCRIT [Concomitant]
     Indication: BLOOD COUNT ABNORMAL
     Dosage: UNK
     Dates: start: 20010101, end: 20060101
  5. NEXIUM [Concomitant]
     Dosage: 20MG/DAILY
  6. ALTACE [Concomitant]
     Dosage: 10MG
  7. MAGNEVIST [Suspect]
     Dosage: UNK
     Dates: start: 20040726, end: 20040726
  8. MAGNEVIST [Suspect]
     Dosage: 30CC
     Dates: start: 20050811, end: 20050811
  9. MAGNEVIST [Suspect]
     Indication: NUCLEAR MAGNETIC RESONANCE IMAGING ABDOMINAL
     Dosage: 0.1MMOL/KG
     Route: 042
     Dates: start: 20060217, end: 20060217
  10. IRON [Concomitant]
     Indication: HAEMOGLOBIN DECREASED
     Dosage: UNK
     Dates: start: 20010101
  11. FUROSEMIDE [Concomitant]
     Dosage: 20MG
  12. MAGNEVIST [Suspect]
     Dosage: 20 ML
     Dates: start: 20030207, end: 20030207
  13. MAGNEVIST [Suspect]
     Indication: ANGIOGRAM PERIPHERAL
     Dosage: 20CC
     Dates: start: 20050824, end: 20050824
  14. MAGNEVIST [Suspect]
  15. OMNISCAN [Suspect]
  16. MYCOPHENOLATE MOFETIL (CELLCEPT) [Concomitant]
     Indication: RENAL TRANSPLANT
     Dosage: 500MG TWICE DAILY
  17. PROTONIX [Concomitant]
     Indication: NAUSEA
     Dosage: 40MG
  18. OMNISCAN [Suspect]
     Indication: NUCLEAR MAGNETIC RESONANCE IMAGING ABDOMINAL
     Dosage: 0.2MMOL/KG DOSE
     Route: 042
     Dates: start: 20050518, end: 20050518
  19. OMNISCAN [Suspect]
     Dosage: 60ML
     Dates: start: 20050823, end: 20050823
  20. ARANESP [Concomitant]
     Indication: BLOOD COUNT ABNORMAL
     Dosage: UNK
     Dates: start: 20010101, end: 20060101
  21. SYNTHROID [Concomitant]
     Indication: THYROID DISORDER
     Dosage: 75MCG
  22. ZYPREXA [Concomitant]
     Indication: AGITATION
     Dosage: PRN
  23. MAGNEVIST [Suspect]
     Indication: ANGIOGRAM CEREBRAL
     Dosage: 0.1MMO/KG
     Dates: start: 20030715, end: 20030715
  24. MAGNEVIST [Suspect]
     Indication: NUCLEAR MAGNETIC RESONANCE IMAGING
  25. OMNISCAN [Suspect]
     Indication: IMAGING PROCEDURE
     Dosage: 0.1MMOL/KG
     Dates: start: 20060609, end: 20060609
  26. EPOGEN [Concomitant]
     Indication: BLOOD COUNT ABNORMAL
     Dosage: UNK
     Dates: start: 20010101, end: 20060101
  27. CYMBALTA [Concomitant]
     Dosage: 30MG/AT BEDTIME
     Dates: start: 20050901
  28. MAGNEVIST [Suspect]
     Dosage: 18ML
     Dates: start: 20030206, end: 20030206
  29. MAGNEVIST [Suspect]
     Dosage: 20CC
     Dates: start: 20030717, end: 20030717
  30. MAGNEVIST [Suspect]
     Indication: IMAGING PROCEDURE
     Dosage: UNK
     Dates: start: 20060530, end: 20060530
  31. VERAPAMIL [Concomitant]
     Dosage: 120MG
  32. ARANESP [Concomitant]
     Indication: NEPHROGENIC ANAEMIA
     Dosage: 1,000MCG EVERY WEEK
     Route: 058

REACTIONS (14)
  - NEPHROGENIC SYSTEMIC FIBROSIS [None]
  - OSTEOPOROSIS [None]
  - ANHEDONIA [None]
  - PAIN [None]
  - INJURY [None]
  - MOBILITY DECREASED [None]
  - UNEVALUABLE EVENT [None]
  - SCAR [None]
  - JOINT CONTRACTURE [None]
  - ANXIETY [None]
  - GENERAL PHYSICAL HEALTH DETERIORATION [None]
  - EXTREMITY CONTRACTURE [None]
  - INTERNAL INJURY [None]
  - JOINT RANGE OF MOTION DECREASED [None]
